FAERS Safety Report 16616340 (Version 1)
Quarter: 2019Q3

REPORT INFORMATION
  Report Type: Spontaneous
  Country: IN (occurrence: IN)
  Receive Date: 20190723
  Receipt Date: 20190723
  Transmission Date: 20191004
  Serious: Yes (Life-Threatening, Hospitalization, Other)
  Sender: FDA-Public Use
  Company Number: IN-TORRENT-00002297

PATIENT
  Age: 80 Year
  Sex: Female

DRUGS (1)
  1. RISPERIDONE. [Suspect]
     Active Substance: RISPERIDONE
     Indication: LOGORRHOEA

REACTIONS (3)
  - Neuroleptic malignant syndrome [Recovered/Resolved]
  - Stereotypy [Recovered/Resolved]
  - Urinary incontinence [Recovered/Resolved]
